FAERS Safety Report 5675956-X (Version None)
Quarter: 2008Q1

REPORT INFORMATION
  Report Type: 
  Country: None (occurrence: None)
  Receive Date: 20080321
  Receipt Date: 20080317
  Transmission Date: 20080703
  Serious: Yes (Hospitalization)
  Sender: FDA-Public Use
  Company Number: JP-ASTRAZENECA-2008AP00633

PATIENT
  Age: 52 Year
  Sex: Male

DRUGS (4)
  1. CASODEX [Suspect]
     Indication: PROSTATE CANCER
     Route: 048
     Dates: start: 20071120, end: 20080122
  2. LEUPROLIDE ACETATE [Suspect]
     Indication: PROSTATE CANCER
     Route: 058
     Dates: start: 20071225
  3. NOVAMIN [Concomitant]
     Indication: NAUSEA
     Dosage: FORMULATION AND ROUTE UNKNOWN
  4. MAGNESIUM OXIDE [Concomitant]
     Route: 048

REACTIONS (1)
  - CARDIAC FAILURE [None]
